FAERS Safety Report 10393503 (Version 4)
Quarter: 2014Q4

REPORT INFORMATION
  Report Type: Spontaneous
  Country: US (occurrence: US)
  Receive Date: 20140819
  Receipt Date: 20141120
  Transmission Date: 20150528
  Serious: Yes (Life-Threatening, Hospitalization, Other)
  Sender: FDA-Public Use
  Company Number: US-ACTELION-A-US2014-103646

PATIENT
  Age: 26 Year
  Sex: Male
  Weight: 67.7 kg

DRUGS (13)
  1. SILDENAFIL. [Concomitant]
     Active Substance: SILDENAFIL
     Dosage: 10 MG, TID
  2. SOTALOL. [Concomitant]
     Active Substance: SOTALOL
     Dosage: 20 MG, Q12HRS
  3. OXYGEN. [Concomitant]
     Active Substance: OXYGEN
     Dosage: 3 L, QD
  4. ASPIRIN. [Concomitant]
     Active Substance: ASPIRIN
     Dosage: 81 MG, QD
  5. LEVOTHYROXINE [Concomitant]
     Active Substance: LEVOTHYROXINE
     Dosage: 25 MCG, QAM
  6. MAG OXIDE [Concomitant]
     Dosage: 400 MG, BID
  7. SPIRONOLACTONE. [Concomitant]
     Active Substance: SPIRONOLACTONE
     Dosage: 25 MG, QD
  8. TORSEMIDE. [Concomitant]
     Active Substance: TORSEMIDE
     Dosage: 40 MG, BID
  9. TRACLEER [Suspect]
     Active Substance: BOSENTAN\BOSENTAN MONOHYDRATE
     Indication: PULMONARY ARTERIAL HYPERTENSION
     Dosage: 125 MG, UNK
     Route: 048
     Dates: start: 201406
  10. POTASSIUM CHLORIDE. [Concomitant]
     Active Substance: POTASSIUM CHLORIDE
     Dosage: 40 MEQ, TID
  11. BUMEX [Concomitant]
     Active Substance: BUMETANIDE
     Dosage: 1 MG, BID
  12. CLONAZEPAM. [Concomitant]
     Active Substance: CLONAZEPAM
     Dosage: .25 UNK, BID
  13. PREDNISONE. [Concomitant]
     Active Substance: PREDNISONE

REACTIONS (17)
  - Procedural complication [Unknown]
  - Pulmonary oedema [Unknown]
  - Abdominal pain upper [Recovering/Resolving]
  - Gamma-glutamyltransferase increased [Recovering/Resolving]
  - Cholecystectomy [Recovered/Resolved]
  - Atrial fibrillation [Unknown]
  - Haemorrhagic anaemia [Unknown]
  - Dyspnoea [Unknown]
  - Blood bilirubin increased [Recovering/Resolving]
  - Pneumonia mycoplasmal [Unknown]
  - Atelectasis [Unknown]
  - Cholecystitis [Recovering/Resolving]
  - Hepatic enzyme increased [Recovering/Resolving]
  - Endotracheal intubation [Unknown]
  - Electrocardiogram QT prolonged [Unknown]
  - Supraventricular tachycardia [Recovered/Resolved]
  - Acute respiratory failure [Unknown]

NARRATIVE: CASE EVENT DATE: 20140717
